FAERS Safety Report 13841243 (Version 1)
Quarter: 2017Q3

REPORT INFORMATION
  Report Type: Spontaneous
  Country: CA (occurrence: CA)
  Receive Date: 20170807
  Receipt Date: 20170807
  Transmission Date: 20171127
  Serious: Yes (Hospitalization)
  Sender: FDA-Public Use
  Company Number: CA-UNICHEM LABORATORIES LIMITED-UCM201707-000195

PATIENT
  Age: 12 Day
  Sex: Male

DRUGS (7)
  1. ACETAMINOPHEN CODEINE [Concomitant]
     Active Substance: ACETAMINOPHEN\CODEINE PHOSPHATE
     Route: 048
  2. LAMOTRIGINE. [Suspect]
     Active Substance: LAMOTRIGINE
     Indication: BIPOLAR DISORDER
     Route: 048
  3. NAPROXEN. [Concomitant]
     Active Substance: NAPROXEN
  4. LEVOTHYROXINE. [Concomitant]
     Active Substance: LEVOTHYROXINE
  5. SERTRALINE [Suspect]
     Active Substance: SERTRALINE HYDROCHLORIDE
     Indication: BIPOLAR DISORDER
     Route: 048
  6. DOCUSATE [Concomitant]
     Active Substance: DOCUSATE
  7. ARIPIPRAZOLE. [Suspect]
     Active Substance: ARIPIPRAZOLE
     Indication: BIPOLAR DISORDER

REACTIONS (21)
  - Toe amputation [Not Recovered/Not Resolved]
  - Disseminated intravascular coagulation [Recovered/Resolved]
  - Skin discolouration [Recovered/Resolved]
  - Gangrene [Recovered/Resolved]
  - Therapy non-responder [Not Recovered/Not Resolved]
  - Partial seizures with secondary generalisation [Recovered/Resolved]
  - Acidosis [Recovered/Resolved]
  - Blood glucose abnormal [Recovered/Resolved]
  - Rhabdomyolysis [Recovered/Resolved]
  - Moaning [Recovered/Resolved]
  - Debridement [Recovered/Resolved]
  - Necrosis [Recovered/Resolved]
  - Dehydration [Recovered/Resolved]
  - Hypovolaemic shock [Recovered/Resolved]
  - Hyporesponsive to stimuli [Recovered/Resolved]
  - Irritability [Recovered/Resolved]
  - Alanine aminotransferase increased [Recovered/Resolved]
  - Renal failure [Recovered/Resolved]
  - Somnolence [Recovered/Resolved]
  - Hypernatraemia [Recovered/Resolved]
  - Exposure during breast feeding [Unknown]
